FAERS Safety Report 16637029 (Version 1)
Quarter: 2019Q3

REPORT INFORMATION
  Report Type: Spontaneous
  Country: US (occurrence: US)
  Receive Date: 20190726
  Receipt Date: 20190726
  Transmission Date: 20191004
  Serious: Yes (Other)
  Sender: FDA-Public Use
  Company Number: US-PFIZER INC-2019313186

PATIENT
  Age: 70 Year
  Sex: Male

DRUGS (2)
  1. TRAMADOL. [Concomitant]
     Active Substance: TRAMADOL
     Dosage: UNK
  2. XANAX [Suspect]
     Active Substance: ALPRAZOLAM
     Indication: TREMOR
     Dosage: UNK, 3X/DAY

REACTIONS (3)
  - Product use issue [Unknown]
  - Poliomyelitis [Unknown]
  - Off label use [Unknown]
